FAERS Safety Report 8409908-3 (Version None)
Quarter: 2012Q2

REPORT INFORMATION
  Report Type: 
  Country: None (occurrence: None)
  Receive Date: 20120529
  Receipt Date: 20120514
  Transmission Date: 20120825
  Serious: Yes (Hospitalization)
  Sender: FDA-Public Use
  Company Number: 2012SGN00184

PATIENT
  Age: 64 Year
  Sex: Male

DRUGS (8)
  1. ADCETRIS [Suspect]
     Indication: ANAPLASTIC LARGE CELL LYMPHOMA T- AND NULL-CELL TYPES
     Dosage: 1.8 MG/KG
     Dates: start: 20120410
  2. BENADRYL [Concomitant]
  3. BENICAR [Concomitant]
  4. COREG [Concomitant]
  5. ACTONEL [Concomitant]
  6. CELLCEPT [Concomitant]
  7. METFORMIN HYDROCHLORIDE [Concomitant]
  8. CRESTOR [Concomitant]

REACTIONS (1)
  - BLOOD CREATININE INCREASED [None]
